FAERS Safety Report 5698901-X (Version None)
Quarter: 2008Q2

REPORT INFORMATION
  Report Type: 
  Country: None (occurrence: None)
  Receive Date: 20080408
  Receipt Date: 20060719
  Transmission Date: 20081010
  Serious: No
  Sender: FDA-Public Use
  Company Number: US-BAYER-US-2006-019662

PATIENT
  Age: 23 Year
  Sex: Female
  Weight: 19 kg

DRUGS (4)
  1. ULTRAVIST (PHARMACY BULK) [Suspect]
     Indication: COMPUTERISED TOMOGRAM ABDOMEN
     Route: 042
     Dates: start: 20060719, end: 20060719
  2. CARAFATE [Concomitant]
  3. VITAMIN CAP [Concomitant]
  4. CONTRAST MEDIA [Concomitant]
     Indication: COMPUTERISED TOMOGRAM ABDOMEN
     Dates: start: 20060719, end: 20060719

REACTIONS (2)
  - PRURITUS [None]
  - URTICARIA [None]
